FAERS Safety Report 7632011-7 (Version None)
Quarter: 2011Q3

REPORT INFORMATION
  Report Type: 
  Country: None (occurrence: None)
  Receive Date: 20110725
  Receipt Date: 20110331
  Transmission Date: 20111222
  Serious: No
  Sender: FDA-Public Use
  Company Number: US-BRISTOL-MYERS SQUIBB COMPANY-13728795

PATIENT
  Age: 65 Year
  Sex: Male
  Weight: 68 kg

DRUGS (5)
  1. WARFARIN SODIUM [Suspect]
     Indication: HEART VALVE REPLACEMENT
     Dosage: PAST 12 YEARS  ;2MG ONCE DAILY, 2 MG IN HALF IF NEEDED FROM 24MAR2011 30MAR2011 TOOK 4MG
  2. COUMADIN [Suspect]
     Indication: HEART VALVE REPLACEMENT
     Dosage: 3-4 MG DAILY, TOOK IT FOR 4 TO 5 YEARS
     Dates: start: 19970101
  3. DIGITALIS TAB [Concomitant]
  4. DIGOXIN [Concomitant]
     Indication: HEART RATE INCREASED
  5. ATENOLOL [Concomitant]

REACTIONS (6)
  - ABDOMINAL DISCOMFORT [None]
  - INSOMNIA [None]
  - SPLEEN SCAN ABNORMAL [None]
  - TINNITUS [None]
  - ABDOMINAL PAIN [None]
  - ABDOMINAL DISTENSION [None]
